FAERS Safety Report 8023683-6 (Version None)
Quarter: 2012Q1

REPORT INFORMATION
  Report Type: 
  Country: None (occurrence: None)
  Receive Date: 20120105
  Receipt Date: 20111227
  Transmission Date: 20120608
  Serious: Yes (Hospitalization, Other)
  Sender: FDA-Public Use
  Company Number: US-BAYER-2011-063275

PATIENT
  Age: 16 Year
  Sex: Female
  Weight: 54 kg

DRUGS (6)
  1. YAZ [Suspect]
     Indication: CONTRACEPTION
     Dosage: UNK
     Dates: start: 20081205, end: 20090727
  2. SYNTHROID [Concomitant]
     Indication: HYPOTHYROIDISM
     Dosage: 1 TABLET DAILY
  3. LOESTRIN FE 1/20 [Concomitant]
     Indication: CONTRACEPTION
     Dosage: UNK
     Dates: start: 20090601
  4. LOESTRIN FE 1/20 [Concomitant]
     Indication: MENORRHAGIA
  5. ACETAMINOPHEN [Concomitant]
     Indication: ANALGESIC THERAPY
     Dosage: UNK UNK, PRN
  6. IBUPROFEN (ADVIL) [Concomitant]
     Indication: ANALGESIC THERAPY
     Dosage: UNK UNK, PRN

REACTIONS (8)
  - PAIN [None]
  - EMOTIONAL DISTRESS [None]
  - INJURY [None]
  - GALLBLADDER INJURY [None]
  - ANXIETY [None]
  - CHOLECYSTITIS CHRONIC [None]
  - SCAR [None]
  - GENERAL PHYSICAL HEALTH DETERIORATION [None]
